FAERS Safety Report 13994356 (Version 1)
Quarter: 2017Q3

REPORT INFORMATION
  Report Type: Other
  Country: None (occurrence: US)
  Receive Date: 20170920
  Receipt Date: 20170920
  Transmission Date: 20171128
  Serious: Yes (Life-Threatening, Other)
  Sender: FDA-Public Use
  Company Number: US-INTERNATIONAL MEDICATION SYSTEMS, LIMITED-2027026

PATIENT
  Age: 42 Year
  Sex: Female

DRUGS (2)
  1. EPINEPHRINE 1:1000 [Suspect]
     Active Substance: EPINEPHRINE
     Indication: ANAPHYLACTIC REACTION
     Route: 030
  2. CEFALEXIN [Concomitant]
     Active Substance: CEPHALEXIN

REACTIONS (1)
  - Cerebral haemorrhage [Unknown]
